FAERS Safety Report 21820557 (Version 2)
Quarter: 2023Q1

REPORT INFORMATION
  Report Type: Report from Study
  Country: US (occurrence: US)
  Receive Date: 20230105
  Receipt Date: 20230224
  Transmission Date: 20230417
  Serious: Yes (Hospitalization)
  Sender: FDA-Public Use
  Company Number: US-002147023-NVSC2022US302307

PATIENT
  Sex: Female

DRUGS (3)
  1. TREPROSTINIL [Suspect]
     Active Substance: TREPROSTINIL
     Indication: Pulmonary arterial hypertension
     Dosage: 88 NG/KG/MIN, CONT
     Route: 042
     Dates: start: 20220113
  2. TREPROSTINIL [Suspect]
     Active Substance: TREPROSTINIL
     Dosage: 95NG/KG/MIN
     Route: 065
  3. TREPROSTINIL [Suspect]
     Active Substance: TREPROSTINIL
     Dosage: 88 NG/KG/MIN, CONT
     Route: 042

REACTIONS (4)
  - Blood potassium decreased [Unknown]
  - Palpitations [Unknown]
  - Viral infection [Unknown]
  - Pain in extremity [Unknown]
